FAERS Safety Report 9471715 (Version 1)
Quarter: 2013Q3

REPORT INFORMATION
  Report Type: Spontaneous
  Country: DE (occurrence: None)
  Receive Date: 20130819
  Receipt Date: 20130819
  Transmission Date: 20140515
  Serious: Yes (Other)
  Sender: FDA-Public Use
  Company Number: GER/GER/13/0034027

PATIENT
  Age: 1 Day
  Sex: Female
  Weight: 2.15 kg

DRUGS (2)
  1. CITALOPRAM (CITALOPRAM) [Suspect]
     Indication: PRODUCT USED FOR UNKNOWN INDICATION
     Dosage: 60 MG , 1 IN 1 D, TRANSPLACENTAL
     Route: 064
  2. FOLIC ACID (FOLIC ACID) [Concomitant]

REACTIONS (2)
  - Small for dates baby [None]
  - Foetal exposure during pregnancy [None]
